FAERS Safety Report 5816501-5 (Version None)
Quarter: 2008Q3

REPORT INFORMATION
  Report Type: 
  Country: None (occurrence: None)
  Receive Date: 20080721
  Receipt Date: 20080709
  Transmission Date: 20090109
  Serious: Yes (Death)
  Sender: FDA-Public Use
  Company Number: US-EISAI MEDICAL RESEARCH-E2020-03110-SPO-US

PATIENT
  Age: 86 Year
  Sex: Female

DRUGS (2)
  1. ARICEPT [Suspect]
     Indication: DRUG USE FOR UNKNOWN INDICATION
     Dosage: UNKNOWN
     Route: 048
  2. OTHER DRUGS NOT SPECIFIED [Concomitant]

REACTIONS (2)
  - DEHYDRATION [None]
  - WITHDRAWAL SYNDROME [None]
